FAERS Safety Report 9305461 (Version 1)
Quarter: 2013Q2

REPORT INFORMATION
  Report Type: Spontaneous
  Country: US (occurrence: US)
  Receive Date: 20130523
  Receipt Date: 20130523
  Transmission Date: 20140414
  Serious: No
  Sender: FDA-Public Use
  Company Number: US-BAYER-2013-063749

PATIENT
  Age: 34 Year
  Sex: Female
  Weight: 79.37 kg

DRUGS (2)
  1. ALEVE CAPLET [Suspect]
     Indication: ARTHRALGIA
     Dosage: 2 DF, QD
     Route: 048
     Dates: start: 201304, end: 20130519
  2. ALEVE CAPLET [Suspect]
     Indication: HEADACHE

REACTIONS (3)
  - Discomfort [Not Recovered/Not Resolved]
  - Incorrect drug administration duration [None]
  - Drug ineffective [None]
